FAERS Safety Report 21134231 (Version 1)
Quarter: 2022Q3

REPORT INFORMATION
  Report Type: Spontaneous
  Country: CN (occurrence: CN)
  Receive Date: 20220726
  Receipt Date: 20220726
  Transmission Date: 20221027
  Serious: Yes (Other)
  Sender: FDA-Public Use
  Company Number: CN-FreseniusKabi-FK202210271

PATIENT
  Age: 83 Year
  Sex: Male
  Weight: 67.00 kg

DRUGS (7)
  1. EGG PHOSPHOLIPIDS\GLYCERIN\MEDIUM-CHAIN TRIGLYCERIDES\SOYBEAN OIL [Suspect]
     Active Substance: EGG PHOSPHOLIPIDS\GLYCERIN\MEDIUM-CHAIN TRIGLYCERIDES\SOYBEAN OIL
     Indication: Nutritional supplementation
     Route: 041
     Dates: start: 20220620, end: 20220620
  2. AMINO ACIDS, SOURCE UNSPECIFIED [Suspect]
     Active Substance: AMINO ACIDS, SOURCE UNSPECIFIED
     Indication: Nutritional supplementation
     Route: 041
     Dates: start: 20220620, end: 20220620
  3. DEXTROSE [Suspect]
     Active Substance: DEXTROSE
     Indication: Nutritional supplementation
     Route: 041
     Dates: start: 20220620, end: 20220620
  4. DEXTROSE [Suspect]
     Active Substance: DEXTROSE
     Indication: Nutritional supplementation
     Route: 041
     Dates: start: 20220620, end: 20220620
  5. INSULIN NOS [Suspect]
     Active Substance: INSULIN NOS
     Indication: Nutritional supplementation
     Route: 041
     Dates: start: 20220620, end: 20220620
  6. SODIUM CHLORIDE [Suspect]
     Active Substance: SODIUM CHLORIDE
     Indication: Nutritional supplementation
     Route: 041
     Dates: start: 20220620, end: 20220620
  7. POTASSIUM CHLORIDE [Suspect]
     Active Substance: POTASSIUM CHLORIDE
     Indication: Nutritional supplementation
     Route: 041
     Dates: start: 20220620, end: 20220620

REACTIONS (5)
  - Tachypnoea [Unknown]
  - Pyrexia [Unknown]
  - Heart rate increased [Unknown]
  - Chills [Unknown]
  - Chest discomfort [Unknown]

NARRATIVE: CASE EVENT DATE: 20220620
